FAERS Safety Report 5645630-4 (Version None)
Quarter: 2008Q1

REPORT INFORMATION
  Report Type: 
  Country: None (occurrence: None)
  Receive Date: 20080229
  Receipt Date: 20080220
  Transmission Date: 20080703
  Serious: Yes (Death, Hospitalization, Other)
  Sender: FDA-Public Use
  Company Number: US-PFIZER INC-2007011081

PATIENT
  Sex: Female
  Weight: 72.6 kg

DRUGS (1)
  1. CELEBREX [Suspect]
     Indication: ARTHRALGIA
     Route: 048
     Dates: start: 20010113, end: 20040212

REACTIONS (3)
  - CARDIAC ARREST [None]
  - MYOCARDIAL INFARCTION [None]
  - PULMONARY EMBOLISM [None]
